FAERS Safety Report 11662323 (Version 2)
Quarter: 2016Q2

REPORT INFORMATION
  Report Type: Report from Study
  Country: US (occurrence: US)
  Receive Date: 20151027
  Receipt Date: 20160601
  Transmission Date: 20160815
  Serious: Yes (Death)
  Sender: FDA-Public Use
  Company Number: US-HOSPIRA-3050325

PATIENT

DRUGS (2)
  1. BUPRENORPHINE. [Suspect]
     Active Substance: BUPRENORPHINE
     Dosage: UNK
  2. HEROIN [Suspect]
     Active Substance: DIACETYLMORPHINE
     Dosage: UNK

REACTIONS (1)
  - Accidental overdose [Fatal]
